FAERS Safety Report 10275391 (Version 1)
Quarter: 2014Q2

REPORT INFORMATION
  Report Type: Spontaneous
  Country: US (occurrence: None)
  Receive Date: 20140630
  Receipt Date: 20140630
  Transmission Date: 20141212
  Serious: Yes (Death)
  Sender: FDA-Public Use
  Company Number: None

PATIENT
  Age: 57 Year
  Sex: Female
  Weight: 65 kg

DRUGS (14)
  1. PACLITAXEL (TAXOL) [Suspect]
     Indication: NON-SMALL CELL LUNG CANCER METASTATIC
     Dosage: 14.9 MG ADMINISTERED ?ONCE?INTRAVENOUS
     Route: 042
     Dates: start: 20140625
  2. DIPHENHYDRAMINE [Concomitant]
  3. FAMOTIDINE [Concomitant]
  4. ONDANSETRON 8MG/DEXAMETHASONE [Concomitant]
  5. LISINOPRIL [Concomitant]
  6. CHLORTHALIDONE [Concomitant]
  7. LORAZEPAM [Concomitant]
  8. OXYCODONE [Concomitant]
  9. OXYCONTIN [Concomitant]
  10. DEXAMETHASONE [Concomitant]
  11. PROCHLORPERAZINE [Concomitant]
  12. SENOKOT [Concomitant]
  13. POLYETHYLENE GLYCOL [Concomitant]
  14. BISACODYL [Concomitant]

REACTIONS (8)
  - Flushing [None]
  - Respiratory distress [None]
  - Respiratory arrest [None]
  - Cardiac arrest [None]
  - Blood pressure increased [None]
  - Ventricular fibrillation [None]
  - Pulseless electrical activity [None]
  - Cardio-respiratory arrest [None]
